FAERS Safety Report 18326523 (Version 1)
Quarter: 2020Q3

REPORT INFORMATION
  Report Type: Spontaneous
  Country: US (occurrence: US)
  Receive Date: 20200929
  Receipt Date: 20200929
  Transmission Date: 20201103
  Serious: No
  Sender: FDA-Public Use
  Company Number: US-TAKEDA-2020TUS040483

PATIENT
  Sex: Female

DRUGS (2)
  1. VELCADE [Suspect]
     Active Substance: BORTEZOMIB
     Indication: COLD TYPE HAEMOLYTIC ANAEMIA
  2. VELCADE [Suspect]
     Active Substance: BORTEZOMIB
     Indication: AUTOIMMUNE HAEMOLYTIC ANAEMIA
     Dosage: UNK
     Route: 065

REACTIONS (2)
  - No adverse event [Unknown]
  - Product prescribing issue [Unknown]
